FAERS Safety Report 4372286-3 (Version None)
Quarter: 2004Q2

REPORT INFORMATION
  Report Type: 
  Country: None (occurrence: None)
  Receive Date: 20040602
  Receipt Date: 20040519
  Transmission Date: 20050107
  Serious: Yes (Hospitalization)
  Sender: FDA-Public Use
  Company Number: 2004214380US

PATIENT
  Age: 67 Year
  Sex: Female

DRUGS (10)
  1. ZYVOX [Suspect]
     Indication: DRUG USE FOR UNKNOWN INDICATION
  2. PROCRIT (ERYTHROPOIETIN) [Concomitant]
     Indication: ANAEMIA
     Dosage: 4000 IU, WEEKLY, SUBCUTANEOUS
     Route: 058
     Dates: start: 20040301
  3. CIPRO [Concomitant]
  4. GLIPIZIDE [Concomitant]
  5. QUINAPRIL HCL [Concomitant]
  6. ATENOLOL [Concomitant]
  7. OMEPRAZOLE [Concomitant]
  8. NORTRIPTYLINE HCL [Concomitant]
  9. VALPROATE SODIUM [Concomitant]
  10. ZOCOR [Concomitant]

REACTIONS (3)
  - ANAEMIA [None]
  - PLATELET COUNT DECREASED [None]
  - PSEUDOMONAS INFECTION [None]
